FAERS Safety Report 4998289-3 (Version None)
Quarter: 2006Q2

REPORT INFORMATION
  Report Type: 
  Country: None (occurrence: None)
  Receive Date: 20060508
  Receipt Date: 20060426
  Transmission Date: 20061013
  Serious: Yes (Other)
  Sender: FDA-Public Use
  Company Number: T200600400

PATIENT
  Age: 51 Year
  Sex: Female
  Weight: 51.2 kg

DRUGS (1)
  1. OPTIRAY 160 [Suspect]
     Indication: COMPUTERISED TOMOGRAM
     Dosage: 100 ML, SINGLE, INTRAVENOUS
     Route: 042
     Dates: start: 20060426, end: 20060426

REACTIONS (3)
  - CHEST DISCOMFORT [None]
  - CONVULSION [None]
  - COUGH [None]
